FAERS Safety Report 5086500-2 (Version None)
Quarter: 2006Q3

REPORT INFORMATION
  Report Type: 
  Country: None (occurrence: None)
  Receive Date: 20060818
  Receipt Date: 20060803
  Transmission Date: 20061208
  Serious: Yes (Other)
  Sender: FDA-Public Use
  Company Number: 2006-BP-09003BP

PATIENT
  Age: 33 Year
  Sex: Female

DRUGS (3)
  1. VIRAMUNE [Suspect]
     Indication: HIV INFECTION
     Dates: start: 20041021
  2. DIDANOSINE [Suspect]
     Indication: HIV INFECTION
     Dates: start: 20041021
  3. ZIDOVUDINE [Suspect]
     Indication: HIV INFECTION
     Dates: start: 20041021

REACTIONS (1)
  - GAMMA-GLUTAMYLTRANSFERASE INCREASED [None]
